FAERS Safety Report 24916962 (Version 2)
Quarter: 2025Q1

REPORT INFORMATION
  Report Type: Spontaneous
  Country: FR (occurrence: FR)
  Receive Date: 20250203
  Receipt Date: 20250221
  Transmission Date: 20250409
  Serious: Yes (Life-Threatening, Other)
  Sender: SANOFI AVENTIS
  Company Number: None

PATIENT
  Age: 24 Year
  Sex: Female
  Weight: 58 kg

DRUGS (34)
  1. PIPERACILLIN SODIUM\TAZOBACTAM SODIUM [Suspect]
     Active Substance: PIPERACILLIN SODIUM\TAZOBACTAM SODIUM
     Indication: Febrile neutropenia
     Dosage: 4 G, Q6H
     Route: 042
     Dates: start: 20241223, end: 20241231
  2. VINCRISTINE SULFATE [Suspect]
     Active Substance: VINCRISTINE SULFATE
     Indication: Acute lymphocytic leukaemia
     Route: 042
     Dates: start: 20241206, end: 20241206
  3. VINCRISTINE SULFATE [Suspect]
     Active Substance: VINCRISTINE SULFATE
     Route: 042
     Dates: start: 20241213, end: 20241213
  4. VINCRISTINE SULFATE [Suspect]
     Active Substance: VINCRISTINE SULFATE
     Route: 042
     Dates: start: 20241220, end: 20241220
  5. DAUNORUBICIN [Suspect]
     Active Substance: DAUNORUBICIN
     Indication: Acute lymphocytic leukaemia
     Dosage: 85 MG, QD
     Route: 042
     Dates: start: 20241206, end: 20241208
  6. DAUNORUBICIN [Suspect]
     Active Substance: DAUNORUBICIN
     Dosage: 85 MG, QD
     Route: 042
     Dates: start: 20241220, end: 20241221
  7. SARCLISA [Suspect]
     Active Substance: ISATUXIMAB-IRFC
     Indication: Acute lymphocytic leukaemia
     Dosage: 580 MG, QD
     Route: 042
     Dates: start: 20241221, end: 20241221
  8. SULFAMETHOXAZOLE\TRIMETHOPRIM [Suspect]
     Active Substance: SULFAMETHOXAZOLE\TRIMETHOPRIM
     Indication: Antibiotic prophylaxis
     Dosage: 3 DF, QW
     Route: 048
     Dates: start: 20241202, end: 20241220
  9. SULFAMETHOXAZOLE\TRIMETHOPRIM [Suspect]
     Active Substance: SULFAMETHOXAZOLE\TRIMETHOPRIM
     Indication: Antibiotic prophylaxis
     Dosage: 1 DF, QD
     Route: 042
     Dates: start: 20241223, end: 20241223
  10. METHOTREXATE [Suspect]
     Active Substance: METHOTREXATE
     Indication: T-cell type acute leukaemia
     Dosage: 15 MG, QD
     Route: 037
     Dates: start: 20241202, end: 20241202
  11. METHOTREXATE [Suspect]
     Active Substance: METHOTREXATE
     Dosage: 15 MG, QD
     Route: 037
     Dates: start: 20241206, end: 20241206
  12. METHOTREXATE [Suspect]
     Active Substance: METHOTREXATE
     Dosage: 15 MG, QD
     Route: 037
     Dates: start: 20241213, end: 20241213
  13. CYTARABINE [Suspect]
     Active Substance: CYTARABINE
     Indication: T-cell type acute leukaemia
     Dosage: 40 MG
     Route: 037
     Dates: start: 20241206, end: 20241206
  14. CYTARABINE [Suspect]
     Active Substance: CYTARABINE
     Dosage: 40 MG, QD
     Route: 037
     Dates: start: 20241213, end: 20241213
  15. CYTARABINE [Suspect]
     Active Substance: CYTARABINE
     Dosage: 3500 MG, QD
     Route: 042
     Dates: start: 20250107, end: 20250108
  16. CYCLOPHOSPHAMIDE [Suspect]
     Active Substance: CYCLOPHOSPHAMIDE
     Indication: T-cell type acute leukaemia
     Dosage: 1.3 G, QD
     Route: 042
     Dates: start: 20241206, end: 20241206
  17. CYCLOPHOSPHAMIDE [Suspect]
     Active Substance: CYCLOPHOSPHAMIDE
     Dosage: 1.3 G, QD
     Route: 042
     Dates: start: 20241220, end: 20241220
  18. DEPO-MEDROL [Suspect]
     Active Substance: METHYLPREDNISOLONE ACETATE
     Indication: T-cell type acute leukaemia
     Dosage: 40 MG, QD
     Route: 037
     Dates: start: 20241206, end: 20241206
  19. DEPO-MEDROL [Suspect]
     Active Substance: METHYLPREDNISOLONE ACETATE
     Dosage: 40 MG, QD
     Route: 037
     Dates: start: 20241213, end: 20241213
  20. ASPARAGINASE [Suspect]
     Active Substance: ASPARAGINASE
     Indication: Acute lymphocytic leukaemia
     Dosage: 10500 IU, QD
     Route: 042
     Dates: start: 20241213, end: 20241213
  21. ASPARAGINASE [Suspect]
     Active Substance: ASPARAGINASE
     Dosage: 10500 IU, QD
     Route: 042
     Dates: start: 20241215, end: 20241215
  22. ASPARAGINASE [Suspect]
     Active Substance: ASPARAGINASE
     Dosage: 10500 IU, QD
     Route: 042
     Dates: start: 20241217, end: 20241217
  23. ASPARAGINASE [Suspect]
     Active Substance: ASPARAGINASE
     Dosage: 10000 IU
     Route: 042
     Dates: start: 20241225, end: 20241225
  24. ALIZAPRIDE HYDROCHLORIDE [Concomitant]
     Active Substance: ALIZAPRIDE HYDROCHLORIDE
     Indication: Prophylaxis of nausea and vomiting
     Dosage: 150 MG, QD
     Route: 042
     Dates: start: 20241208, end: 20241210
  25. ALIZAPRIDE HYDROCHLORIDE [Concomitant]
     Active Substance: ALIZAPRIDE HYDROCHLORIDE
     Dosage: 150 MG, QD
     Route: 042
     Dates: start: 20241214, end: 20241226
  26. FILGRASTIM [Concomitant]
     Active Substance: FILGRASTIM
     Indication: Febrile neutropenia
     Dosage: 30 10*6.IU, QD
     Route: 042
     Dates: start: 20241223, end: 20241231
  27. CASPOFUNGIN ACETATE [Concomitant]
     Active Substance: CASPOFUNGIN ACETATE
     Indication: Febrile neutropenia
     Dosage: 50 MG, QD
     Route: 042
     Dates: start: 20241217, end: 20241231
  28. CASPOFUNGIN ACETATE [Concomitant]
     Active Substance: CASPOFUNGIN ACETATE
     Indication: Febrile neutropenia
     Route: 042
     Dates: start: 20241216, end: 20241216
  29. ZOVIRAX [Concomitant]
     Active Substance: ACYCLOVIR
     Indication: Meningitis
     Dosage: 600 MG, Q8H
     Route: 042
     Dates: start: 20241218, end: 20241223
  30. ZOVIRAX [Concomitant]
     Active Substance: ACYCLOVIR
     Dosage: 900 MG, Q8H
     Route: 042
     Dates: start: 20241224, end: 20241231
  31. ZOVIRAX [Concomitant]
     Active Substance: ACYCLOVIR
     Dosage: 300 MG, Q8H
     Route: 042
     Dates: start: 20250101, end: 20250103
  32. MEROPENEM [Concomitant]
     Active Substance: MEROPENEM
     Indication: Febrile neutropenia
     Dosage: 1 G, Q8H
     Route: 042
     Dates: start: 20241215, end: 20241223
  33. PREDNISONE [Concomitant]
     Active Substance: PREDNISONE
     Indication: Chemotherapy
     Dosage: 100 MG, QD
     Route: 048
     Dates: start: 20241130, end: 20241219
  34. LOVENOX [Concomitant]
     Active Substance: ENOXAPARIN SODIUM
     Indication: Thrombosis prophylaxis
     Dosage: 4000 IU, QD
     Route: 058
     Dates: start: 20241214, end: 20250103

REACTIONS (1)
  - Encephalopathy [Recovered/Resolved with Sequelae]

NARRATIVE: CASE EVENT DATE: 20241226
